FAERS Safety Report 16939329 (Version 2)
Quarter: 2019Q4

REPORT INFORMATION
  Report Type: Spontaneous
  Country: RO (occurrence: RO)
  Receive Date: 20191021
  Receipt Date: 20191128
  Transmission Date: 20200122
  Serious: Yes (Other)
  Sender: FDA-Public Use
  Company Number: RO-AMGEN-ROUSP2019173596

PATIENT
  Age: 56 Year
  Sex: Female

DRUGS (6)
  1. ENBREL [Suspect]
     Active Substance: ETANERCEPT
     Indication: RHEUMATOID ARTHRITIS
     Dosage: 200 MG, WEEKLY (50 MG FOR TIMES A WEEK)
     Route: 065
     Dates: start: 2008
  2. ENBREL [Suspect]
     Active Substance: ETANERCEPT
     Dosage: 50 MILLIGRAM, QWK
     Route: 065
     Dates: start: 2008
  3. LEFLUNOMID [Suspect]
     Active Substance: LEFLUNOMIDE
     Indication: RHEUMATOID ARTHRITIS
     Dosage: 20 MILLIGRAM
     Route: 065
     Dates: start: 2008
  4. CALCIUM LACTATE [Concomitant]
     Active Substance: CALCIUM LACTATE
     Dosage: 1000 MG, DAILY, 10 DAYS PER MONTH
  5. ALPHA D3 [Concomitant]
     Active Substance: ALFACALCIDOL
     Dosage: 0.5 UG/24H, 2X/DAY, 10 DAYS PER MONTH
  6. LECANIDIPINE [Concomitant]
     Dosage: 10 MILLIGRAM, QD

REACTIONS (6)
  - Chronic hepatitis B [Unknown]
  - Essential hypertension [Unknown]
  - Osteopenia [Unknown]
  - Blood creatinine increased [Unknown]
  - Off label use [Unknown]
  - Blood iron decreased [Unknown]

NARRATIVE: CASE EVENT DATE: 2008
